FAERS Safety Report 15761300 (Version 2)
Quarter: 2019Q1

REPORT INFORMATION
  Report Type: Spontaneous
  Country: CN (occurrence: CN)
  Receive Date: 20181226
  Receipt Date: 20190103
  Transmission Date: 20190417
  Serious: Yes (Hospitalization, Other)
  Sender: FDA-Public Use
  Company Number: CN-PFIZER INC-2018526440

PATIENT
  Age: 33 Year
  Sex: Female

DRUGS (2)
  1. METHOTREXATE SODIUM. [Suspect]
     Active Substance: METHOTREXATE SODIUM
     Indication: SYSTEMIC LUPUS ERYTHEMATOSUS
     Dosage: 10 MG, DAILY (EVERY DAY)
     Dates: start: 201805
  2. METHOTREXATE SODIUM. [Suspect]
     Active Substance: METHOTREXATE SODIUM
     Indication: BACK PAIN

REACTIONS (8)
  - Leptotrichia infection [Recovered/Resolved]
  - Bacteraemia [Recovered/Resolved]
  - Neutropenia [Recovered/Resolved]
  - Toxicity to various agents [Unknown]
  - Inappropriate schedule of product administration [Unknown]
  - Ulcer haemorrhage [Unknown]
  - Bone marrow failure [Recovering/Resolving]
  - Mouth ulceration [Recovering/Resolving]
